FAERS Safety Report 5123746-9 (Version None)
Quarter: 2006Q4

REPORT INFORMATION
  Report Type: 
  Country: None (occurrence: None)
  Receive Date: 20061005
  Receipt Date: 20060915
  Transmission Date: 20070319
  Serious: Yes (Hospitalization)
  Sender: FDA-Public Use
  Company Number: FR200609003919

PATIENT
  Age: 84 Year
  Sex: Female

DRUGS (6)
  1. PROZAC [Suspect]
     Dosage: 10 MG, DAILY 1/D, ORAL
     Route: 048
     Dates: start: 20060812, end: 20060822
  2. PLAVIX [Concomitant]
  3. VERAPAMIL [Concomitant]
  4. FONZYLANE (BUFLOMEDIL HYDROCHLORIDE) [Concomitant]
  5. DITROPAN [Concomitant]
  6. ACETAMINOPHEN W/ PROPOXYPHENE HCL [Concomitant]

REACTIONS (2)
  - GAIT DISTURBANCE [None]
  - TREMOR [None]
